FAERS Safety Report 9483242 (Version 1)
Quarter: 2013Q3

REPORT INFORMATION
  Report Type: Spontaneous
  Country: US (occurrence: US)
  Receive Date: 20130828
  Receipt Date: 20130828
  Transmission Date: 20140515
  Serious: Yes (Hospitalization)
  Sender: FDA-Public Use
  Company Number: US-AMGEN-KDL245457

PATIENT
  Age: 60 Year
  Sex: Female

DRUGS (4)
  1. ENBREL [Suspect]
     Indication: RHEUMATOID ARTHRITIS
     Dosage: 50 MG, QWK
     Route: 058
     Dates: start: 2004
  2. HYDROXYCHLOROQUINE SULFATE [Concomitant]
     Dosage: 20 MG, BID
     Route: 048
     Dates: start: 2006
  3. AZATHIOPRINE [Concomitant]
     Dosage: 50 MG, QD
     Route: 048
  4. LEFLUNOMIDE [Concomitant]
     Dosage: 10 MG, QD
     Route: 048

REACTIONS (3)
  - Large intestine perforation [Unknown]
  - Myocardial infarction [Unknown]
  - White blood cell count abnormal [Unknown]
